FAERS Safety Report 8453846-7 (Version None)
Quarter: 2012Q2

REPORT INFORMATION
  Report Type: 
  Country: None (occurrence: None)
  Receive Date: 20120620
  Receipt Date: 20120614
  Transmission Date: 20120825
  Serious: Yes (Other)
  Sender: FDA-Public Use
  Company Number: PHHY2011CA10753

PATIENT
  Sex: Male

DRUGS (3)
  1. SANDOSTATIN LAR [Suspect]
     Dosage: 30 MG, EVERY 4 WEEKS
     Route: 030
     Dates: end: 20120524
  2. SANDOSTATIN LAR [Suspect]
     Indication: CARCINOID SYNDROME
     Dosage: 30 MG, QMO
     Route: 030
     Dates: start: 20061213
  3. AMIODARONE HYDROCHLORIDE [Suspect]

REACTIONS (6)
  - TACHYCARDIA [None]
  - ADVERSE EVENT [None]
  - INTESTINAL HAEMORRHAGE [None]
  - CONSTIPATION [None]
  - LIMB INJURY [None]
  - HEART RATE INCREASED [None]
